FAERS Safety Report 6013239 (Version 21)
Quarter: 2013Q2

REPORT INFORMATION
  Report Type: Spontaneous
  Country: US (occurrence: US)
  Receive Date: 20060328
  Receipt Date: 20130425
  Transmission Date: 20140414
  Serious: Yes (Death, Hospitalization, Other)
  Sender: FDA-Public Use
  Company Number: PHEH2006US03540

PATIENT
  Age: 47 Year
  Sex: Female
  Weight: 112.9 kg

DRUGS (31)
  1. RED BLOOD CELLS [Concomitant]
  2. VICOPROFEN [Concomitant]
  3. CLARITIN-D [Concomitant]
  4. STEROIDS NOS [Concomitant]
  5. RESTORIL [Concomitant]
  6. COMPAZINE [Concomitant]
  7. COLACE [Concomitant]
  8. MORPHINE SULFATE [Concomitant]
  9. DEXAMETHASONE [Concomitant]
  10. PEPCID [Concomitant]
  11. ZANTAC [Concomitant]
  12. MILK OF MAGNESIA [Concomitant]
  13. ROCEFIN [Concomitant]
     Indication: ARTHRITIS
  14. AROMASIN [Concomitant]
  15. LOTRISONE [Concomitant]
  16. KEFLEX                                  /UNK/ [Concomitant]
  17. ARIMIDEX ^ASTRAZENECA^ [Concomitant]
  18. AREDIA [Suspect]
     Indication: METASTASES TO BONE
     Dosage: 90 MG, QMO
     Route: 042
     Dates: start: 19991121, end: 20020218
  19. ZOMETA [Suspect]
     Indication: METASTASES TO BONE
     Dosage: 4 MG, QMO
     Route: 042
     Dates: start: 20020318, end: 20030306
  20. ZOMETA [Suspect]
     Dosage: 4 MG, QMO
     Route: 042
     Dates: start: 2003, end: 20050829
  21. ZOMETA [Suspect]
     Dosage: 4 MG
     Dates: start: 2005
  22. DIPHENHYDRAMINE [Concomitant]
     Dosage: 25 MG, QMO
  23. RADIATION THERAPY [Concomitant]
     Indication: METASTASES TO BONE
     Dates: start: 200810
  24. VOLTAREN                           /00372303/ [Concomitant]
  25. NAPRELAN ^ELAN^ [Concomitant]
  26. CORTISONE [Concomitant]
  27. LOVENOX [Concomitant]
  28. TYLENOL W/CODEINE NO. 3 [Concomitant]
  29. AUREOMICINA [Concomitant]
  30. OXYCODONE [Concomitant]
  31. ERYTHROPOIETIN [Concomitant]

REACTIONS (97)
  - Death [Fatal]
  - Musculoskeletal chest pain [Unknown]
  - Fall [Unknown]
  - Hip fracture [Unknown]
  - Osteonecrosis of jaw [Recovered/Resolved]
  - Bone lesion [Recovered/Resolved]
  - Fistula [Recovered/Resolved]
  - Osteitis [Recovered/Resolved]
  - Actinomycosis [Recovered/Resolved]
  - Toothache [Unknown]
  - Tooth disorder [Unknown]
  - Dental caries [Not Recovered/Not Resolved]
  - Tooth infection [Not Recovered/Not Resolved]
  - Excessive granulation tissue [Recovered/Resolved]
  - Breast cancer metastatic [Recovering/Resolving]
  - Breast mass [Unknown]
  - Lymphadenopathy [Unknown]
  - Bone pain [Unknown]
  - Back pain [Not Recovered/Not Resolved]
  - Scoliosis [Unknown]
  - Balance disorder [Unknown]
  - Abdominal hernia [Unknown]
  - Arteriosclerosis [Unknown]
  - Hepatic steatosis [Unknown]
  - Postmenopausal haemorrhage [Unknown]
  - Arthralgia [Unknown]
  - Cardiomegaly [Unknown]
  - Metastases to bone [Unknown]
  - Disease progression [Unknown]
  - Tendonitis [Unknown]
  - Osteoarthritis [Unknown]
  - Interstitial lung disease [Unknown]
  - Intervertebral disc degeneration [Unknown]
  - Intervertebral disc protrusion [Unknown]
  - Spinal compression fracture [Unknown]
  - Gait disturbance [Unknown]
  - Catheter site related reaction [Unknown]
  - Costochondritis [Unknown]
  - Sinusitis [Unknown]
  - Joint range of motion decreased [Unknown]
  - Neck pain [Unknown]
  - Asthenia [Unknown]
  - Pain in extremity [Unknown]
  - Fatigue [Unknown]
  - Walking aid user [Unknown]
  - Weight decreased [Unknown]
  - Cystitis [Unknown]
  - Upper respiratory tract infection [Unknown]
  - Cough [Unknown]
  - Rhinorrhoea [Unknown]
  - Headache [Unknown]
  - Chest discomfort [Unknown]
  - Productive cough [Unknown]
  - Sputum discoloured [Unknown]
  - Oropharyngeal pain [Unknown]
  - Pharyngeal erythema [Unknown]
  - Chest pain [Unknown]
  - Urinary tract infection [Unknown]
  - Urine analysis abnormal [Unknown]
  - Pathological fracture [Unknown]
  - Hypertriglyceridaemia [Unknown]
  - Hyperglycaemia [Unknown]
  - Pneumonitis chemical [Unknown]
  - Blood pressure increased [Unknown]
  - Ear canal erythema [Unknown]
  - Muscle spasms [Unknown]
  - Ear discomfort [Unknown]
  - Abdominal distension [Unknown]
  - Flatulence [Unknown]
  - Pruritus [Unknown]
  - Diarrhoea [Unknown]
  - Dermatitis [Unknown]
  - Incontinence [Recovering/Resolving]
  - Obstruction gastric [Unknown]
  - Spinal deformity [Unknown]
  - Metastases to spine [Unknown]
  - Neoplasm malignant [Unknown]
  - Neoplasm progression [Unknown]
  - Lacunar infarction [Unknown]
  - Dyspnoea [Unknown]
  - Metastases to pelvis [Unknown]
  - Respiratory distress [Unknown]
  - Oedema peripheral [Unknown]
  - Anxiety [Unknown]
  - Osteolysis [Unknown]
  - Intervertebral disc space narrowing [Unknown]
  - Cervical spinal stenosis [Unknown]
  - Vulvovaginal dryness [Unknown]
  - Libido decreased [Unknown]
  - Left ventricular hypertrophy [Unknown]
  - Endometrial hypertrophy [Unknown]
  - Uterine polyp [Unknown]
  - Deep vein thrombosis [Unknown]
  - Spinal osteoarthritis [Unknown]
  - Cerebrovascular accident [Unknown]
  - Cerebral atrophy [Unknown]
  - Pain in jaw [Unknown]
